FAERS Safety Report 4697960-0 (Version None)
Quarter: 2005Q2

REPORT INFORMATION
  Report Type: 
  Country: None (occurrence: None)
  Receive Date: 20050621
  Receipt Date: 20050607
  Transmission Date: 20051028
  Serious: Yes (Other)
  Sender: FDA-Public Use
  Company Number: 05H-163-0300442-00

PATIENT
  Age: 51 Year
  Sex: Male

DRUGS (2)
  1. LIDOCAINE HYDROCHLORIDE W/ EPINEPHRINE 1:100,000 INJ [Suspect]
     Indication: ANAESTHESIA
     Dosage: INJECTION
     Dates: start: 20050606, end: 20050606
  2. PROAZC (FLUOXETINE HYDROCHLORIDE) [Concomitant]

REACTIONS (11)
  - ANAESTHESIA [None]
  - ANAESTHETIC COMPLICATION [None]
  - DRUG INTERACTION [None]
  - DYSARTHRIA [None]
  - HALLUCINATION, AUDITORY [None]
  - HEADACHE [None]
  - HYPERHIDROSIS [None]
  - HYPERTENSION [None]
  - NAUSEA [None]
  - PAIN [None]
  - TREMOR [None]
